FAERS Safety Report 9300648 (Version 1)
Quarter: 2013Q2

REPORT INFORMATION
  Report Type: Spontaneous
  Country: US (occurrence: None)
  Receive Date: 20130520
  Receipt Date: 20130520
  Transmission Date: 20140414
  Serious: No
  Sender: FDA-Public Use
  Company Number: None

PATIENT
  Age: 69 Year
  Sex: Female
  Weight: 70.2 kg

DRUGS (1)
  1. GAMMAGARD [Suspect]
     Dosage: EVERY 4 WEEKS
     Route: 042
     Dates: start: 20130129, end: 20130425

REACTIONS (7)
  - Loss of consciousness [None]
  - Vomiting [None]
  - Headache [None]
  - Dizziness [None]
  - Decreased appetite [None]
  - Irritable bowel syndrome [None]
  - Sinusitis [None]
